FAERS Safety Report 9604345 (Version 1)
Quarter: 2013Q4

REPORT INFORMATION
  Report Type: Report from Study
  Country: CA (occurrence: CA)
  Receive Date: 20131008
  Receipt Date: 20131008
  Transmission Date: 20140711
  Serious: Yes (Other)
  Sender: FDA-Public Use
  Company Number: CA-MILLENNIUM PHARMACEUTICALS, INC.-2013JNJ000461

PATIENT
  Sex: 0

DRUGS (5)
  1. VELCADE [Suspect]
     Indication: AMYLOIDOSIS
     Dosage: UNK
     Route: 065
     Dates: end: 201306
  2. LYRICA [Concomitant]
  3. TYLENOL                            /00020001/ [Concomitant]
  4. LASIX                              /00032601/ [Concomitant]
     Dosage: 80 MG, BID
  5. ASA [Concomitant]
     Dosage: 81 MG, UNK

REACTIONS (5)
  - Hepatomegaly [Unknown]
  - Abdominal distension [Unknown]
  - Vomiting [Unknown]
  - Recurrent cancer [Unknown]
  - Off label use [Unknown]
